FAERS Safety Report 10568985 (Version 1)
Quarter: 2014Q4

REPORT INFORMATION
  Report Type: Spontaneous
  Country: US (occurrence: US)
  Receive Date: 20141106
  Receipt Date: 20141106
  Transmission Date: 20150529
  Serious: No
  Sender: FDA-Public Use
  Company Number: US-TEVA-519947USA

PATIENT
  Sex: Female

DRUGS (4)
  1. COPAXONE [Suspect]
     Active Substance: GLATIRAMER ACETATE
     Indication: MULTIPLE SCLEROSIS
     Route: 058
     Dates: start: 20140826
  2. PREMARIN [Concomitant]
     Active Substance: ESTROGENS, CONJUGATED
  3. SERTRALINE [Concomitant]
     Active Substance: SERTRALINE HYDROCHLORIDE
  4. PILOCARPINE [Concomitant]
     Active Substance: PILOCARPINE

REACTIONS (5)
  - Injection site pruritus [Unknown]
  - Injection site reaction [Unknown]
  - Injection site pain [Unknown]
  - Influenza like illness [Unknown]
  - Injection site swelling [Unknown]
